FAERS Safety Report 16841902 (Version 1)
Quarter: 2019Q3

REPORT INFORMATION
  Report Type: Spontaneous
  Country: MX (occurrence: MX)
  Receive Date: 20190923
  Receipt Date: 20190923
  Transmission Date: 20191005
  Serious: Yes (Other)
  Sender: FDA-Public Use
  Company Number: MX-INCYTE CORPORATION-2019IN009407

PATIENT

DRUGS (3)
  1. JAKAVI [Suspect]
     Active Substance: RUXOLITINIB
     Indication: MYELOFIBROSIS
     Dosage: 6 DF, QD (2 PILLS IN THE MORNING, 2 PILLS IN THE AFTERNOON, AND 2 PILLS AT NIGHT)
     Route: 065
  2. JAKAVI [Suspect]
     Active Substance: RUXOLITINIB
     Dosage: UNK
     Route: 065
  3. JAKAVI [Suspect]
     Active Substance: RUXOLITINIB
     Dosage: 4 DF, QD (2 PILLS IN THE DAYTIME AND 2 PILLS AT NIGHT)
     Route: 065

REACTIONS (6)
  - Platelet count decreased [Recovered/Resolved]
  - Amnesia [Recovered/Resolved]
  - Full blood count decreased [Recovered/Resolved]
  - Cerebral ischaemia [Recovered/Resolved]
  - Spleen disorder [Recovered/Resolved]
  - Incorrect dose administered [Unknown]
